FAERS Safety Report 10338299 (Version 2)
Quarter: 2014Q3

REPORT INFORMATION
  Report Type: Spontaneous
  Country: US (occurrence: US)
  Receive Date: 20140724
  Receipt Date: 20140807
  Transmission Date: 20150326
  Serious: Yes (Other)
  Sender: FDA-Public Use
  Company Number: US-BAYER-2014-109204

PATIENT
  Age: 26 Year
  Sex: Female
  Weight: 54.42 kg

DRUGS (10)
  1. CORTISONE [CORTISONE] [Concomitant]
     Indication: PAIN IN EXTREMITY
  2. VICODIN [Concomitant]
     Active Substance: ACETAMINOPHEN\HYDROCODONE BITARTRATE
  3. VOLTAREN [DICLOFENAC] [Concomitant]
     Active Substance: DICLOFENAC SODIUM
     Indication: PAIN IN EXTREMITY
  4. ULTRAM [Concomitant]
     Active Substance: TRAMADOL HYDROCHLORIDE
  5. METHYLPREDNISOLONE [METHYLPREDNISOLONE] [Concomitant]
     Dosage: 4 MG DOSEPAK 21^S
     Dates: start: 20091103
  6. YAZ [Suspect]
     Active Substance: DROSPIRENONE\ETHINYL ESTRADIOL
     Dosage: UNK
     Route: 048
     Dates: start: 200705, end: 20091114
  7. DIFFERIN [Concomitant]
     Active Substance: ADAPALENE
     Dosage: APPLY TO AFFECTED AREA EVERY OTHER NIGHT INCREASING TO Q HS AS TOLERATED
     Dates: start: 20090902
  8. ADVIL [Concomitant]
     Active Substance: IBUPROFEN
  9. NSAID^S [Concomitant]
     Active Substance: UNSPECIFIED INGREDIENT
     Indication: PAIN IN EXTREMITY
  10. COUMADIN [Concomitant]
     Active Substance: WARFARIN SODIUM
     Indication: DEEP VEIN THROMBOSIS

REACTIONS (6)
  - General physical health deterioration [None]
  - Deep vein thrombosis [None]
  - Emotional distress [None]
  - Anxiety [None]
  - Injury [None]
  - Pain [None]

NARRATIVE: CASE EVENT DATE: 20091114
